FAERS Safety Report 10551773 (Version 2)
Quarter: 2014Q4

REPORT INFORMATION
  Report Type: Report from Study
  Country: JP (occurrence: JP)
  Receive Date: 20141029
  Receipt Date: 20141029
  Transmission Date: 20150529
  Serious: Yes (Hospitalization)
  Sender: FDA-Public Use
  Company Number: JP-PFIZER INC-2013099385

PATIENT
  Age: 51 Year
  Sex: Female
  Weight: 85.6 kg

DRUGS (15)
  1. TAKEPRON OD [Concomitant]
     Active Substance: LANSOPRAZOLE
     Dosage: 15 MG, 1X/DAY
     Route: 048
  2. RESPLEN [Concomitant]
     Active Substance: EPRAZINONE
     Dosage: 20 MG, 2X/DAY
     Route: 048
  3. MIORELARK [Concomitant]
     Dosage: 50 MG, 2X/DAY
     Route: 048
  4. ALFAROL [Concomitant]
     Active Substance: ALFACALCIDOL
     Dosage: 0.25 UG, 2X/DAY
     Route: 048
  5. MECOBALAMIN [Concomitant]
     Active Substance: METHYLCOBALAMIN
     Dosage: 500 UG, 2X/DAY
     Route: 048
  6. PREDONINE [Concomitant]
     Active Substance: PREDNISOLONE\PREDNISOLONE ACETATE\PREDNISOLONE SODIUM SUCCINATE
     Dosage: 10 MG, 1X/DAY
     Route: 048
  7. FOSAMAX [Concomitant]
     Active Substance: ALENDRONATE SODIUM
     Dosage: 35 MG, WEEKLY
     Route: 048
  8. ALLEGRA [Concomitant]
     Active Substance: FEXOFENADINE HYDROCHLORIDE
     Dosage: 60 MG, 2X/DAY
     Route: 048
  9. MONTELUKAST [Concomitant]
     Active Substance: MONTELUKAST SODIUM
     Dosage: 10 MG, 1X/DAY
     Route: 048
  10. CRIZOTINIB [Suspect]
     Active Substance: CRIZOTINIB
     Indication: NON-SMALL CELL LUNG CANCER
     Dosage: 250 MG, 2X/DAY
     Route: 048
     Dates: start: 20121001, end: 20121102
  11. PAXIL [Concomitant]
     Active Substance: PAROXETINE HYDROCHLORIDE
     Dosage: 10 MG, 2X/DAY
     Route: 048
  12. PULMICORT TURBUHALER [Concomitant]
     Active Substance: BUDESONIDE
     Dosage: 400 UG, 2X/DAY
     Route: 055
  13. CRIZOTINIB [Suspect]
     Active Substance: CRIZOTINIB
     Dosage: 200 MG, 2X/DAY
     Route: 048
     Dates: start: 20121103
  14. AMLODIN [Concomitant]
     Active Substance: AMLODIPINE BESYLATE
     Dosage: 5 MG, 1X/DAY
     Route: 048
  15. REBAMIPIDE [Concomitant]
     Active Substance: REBAMIPIDE
     Dosage: 100 MG, 2X/DAY
     Route: 048

REACTIONS (2)
  - Oesophageal pain [Recovered/Resolved]
  - White blood cell count increased [Recovered/Resolved]

NARRATIVE: CASE EVENT DATE: 20130108
